FAERS Safety Report 4417003-3 (Version None)
Quarter: 2004Q3

REPORT INFORMATION
  Report Type: 
  Country: None (occurrence: None)
  Receive Date: 20040802
  Receipt Date: 20040722
  Transmission Date: 20050211
  Serious: Yes (Death, Other)
  Sender: FDA-Public Use
  Company Number: HQWYE445327JUL04

PATIENT
  Sex: Female

DRUGS (2)
  1. PREMPRO [Suspect]
     Indication: HORMONE REPLACEMENT THERAPY
     Dates: end: 20020101
  2. . [Concomitant]

REACTIONS (2)
  - ADENOCARCINOMA [None]
  - OVARIAN CANCER METASTATIC [None]
